FAERS Safety Report 5525223-X (Version None)
Quarter: 2007Q4

REPORT INFORMATION
  Report Type: 
  Country: None (occurrence: None)
  Receive Date: 20071126
  Receipt Date: 20071116
  Transmission Date: 20080405
  Serious: Yes (Hospitalization)
  Sender: FDA-Public Use
  Company Number: JP-AVENTIS-200712810JP

PATIENT
  Age: 77 Year
  Sex: Male
  Weight: 57 kg

DRUGS (5)
  1. AMARYL [Suspect]
     Indication: DIABETES MELLITUS
     Route: 048
     Dates: start: 20070918, end: 20071012
  2. ACTOS [Concomitant]
     Indication: DIABETES MELLITUS
     Route: 048
     Dates: start: 20070918, end: 20071012
  3. DEPAKENE                           /00228501/ [Concomitant]
     Indication: CEREBRAL INFARCTION
     Dosage: DOSE: 3 TABLETS
     Route: 048
     Dates: start: 20050301
  4. PREDNISOLONE [Concomitant]
     Indication: MYELODYSPLASTIC SYNDROME
     Dosage: DOSE: 2 TABLETS
     Route: 048
     Dates: start: 20050301
  5. ZYLORIC [Concomitant]
     Indication: HYPERURICAEMIA
     Dosage: DOSE: 1 TABLET
     Route: 048
     Dates: start: 20050801

REACTIONS (2)
  - DERMATITIS EXFOLIATIVE [None]
  - ERYTHEMA MULTIFORME [None]
